FAERS Safety Report 6112162-9 (Version None)
Quarter: 2009Q1

REPORT INFORMATION
  Report Type: 
  Country: None (occurrence: None)
  Receive Date: 20090310
  Receipt Date: 20090226
  Transmission Date: 20090719
  Serious: Yes (Other)
  Sender: FDA-Public Use
  Company Number: CHPA2009US05897

PATIENT
  Age: 12 Year
  Sex: Female
  Weight: 76.6 kg

DRUGS (3)
  1. THERAFLU COLD AND SORE THROAT        (PHENIRAMINE MALEATE, PHENYLPHRIN [Suspect]
     Indication: COUGH
     Dosage: 1 DF Q8H ORAL
     Route: 048
     Dates: start: 20090222, end: 20090223
  2. THERAFLU COLD AND SORE THROAT        (PHENIRAMINE MALEATE, PHENYLPHRIN [Suspect]
     Indication: NASOPHARYNGITIS
     Dosage: 1 DF Q8H ORAL
     Route: 048
     Dates: start: 20090222, end: 20090223
  3. THERAFLU COLD AND SORE THROAT        (PHENIRAMINE MALEATE, PHENYLPHRIN [Suspect]
     Indication: OROPHARYNGEAL PAIN
     Dosage: 1 DF Q8H ORAL
     Route: 048
     Dates: start: 20090222, end: 20090223

REACTIONS (5)
  - CONFUSIONAL STATE [None]
  - DYSTONIA [None]
  - IRRITABILITY [None]
  - MUSCULOSKELETAL STIFFNESS [None]
  - THINKING ABNORMAL [None]
